FAERS Safety Report 15256449 (Version 2)
Quarter: 2018Q3

REPORT INFORMATION
  Report Type: Spontaneous
  Country: US (occurrence: US)
  Receive Date: 20180808
  Receipt Date: 20180927
  Transmission Date: 20181010
  Serious: No
  Sender: FDA-Public Use
  Company Number: US-SA-2018SA214684

PATIENT
  Age: 65 Year
  Sex: Female

DRUGS (2)
  1. PRALUENT [Suspect]
     Active Substance: ALIROCUMAB
     Indication: PRODUCT USED FOR UNKNOWN INDICATION
     Dosage: 75 MG, QOW
     Route: 058
     Dates: start: 20180523
  2. ALIROCUMAB PREFILLED PEN [Suspect]
     Active Substance: ALIROCUMAB
     Indication: PRODUCT USED FOR UNKNOWN INDICATION
     Dosage: 75 MG, QOW
     Route: 058
     Dates: start: 20180523

REACTIONS (7)
  - Pain [Unknown]
  - Unevaluable event [Unknown]
  - Abdominal distension [Unknown]
  - Chest pain [Unknown]
  - Feeling abnormal [Unknown]
  - Pain in extremity [Unknown]
  - Swelling [Unknown]

NARRATIVE: CASE EVENT DATE: 20180801
